FAERS Safety Report 6304047-X (Version None)
Quarter: 2009Q3

REPORT INFORMATION
  Report Type: 
  Country: None (occurrence: None)
  Receive Date: 20090806
  Receipt Date: 20090729
  Transmission Date: 20100115
  Serious: Yes (Other)
  Sender: FDA-Public Use
  Company Number: 2009AL003342

PATIENT
  Age: 74 Year
  Sex: Male

DRUGS (28)
  1. DIGOXIN [Suspect]
     Dosage: PO
     Route: 048
     Dates: start: 20010101
  2. SPIRIVA [Concomitant]
  3. CAPTOPRIL [Concomitant]
  4. FLOMAX [Concomitant]
  5. NASONEX [Concomitant]
  6. ADVAIR HFA [Concomitant]
  7. PLAVIX [Concomitant]
  8. KEFLEX [Concomitant]
  9. PRILOSEC [Concomitant]
  10. ASPIRIN [Concomitant]
  11. AZITHROMYCIN [Concomitant]
  12. SINGULAIR [Concomitant]
  13. PULMICORT-100 [Concomitant]
  14. PREDNISONE [Concomitant]
  15. DUONEB [Concomitant]
  16. OMEPRAZOLE [Concomitant]
  17. SOLU-MEDROL [Concomitant]
  18. ALBUTEROL [Concomitant]
  19. MUCINEX [Concomitant]
  20. GUAIFENESIN [Concomitant]
  21. ZITHROMAX [Concomitant]
  22. SOTALOL HCL [Concomitant]
  23. METOPROLOL [Concomitant]
  24. DIAZEPAM [Concomitant]
  25. LISINOPRIL [Concomitant]
  26. FUROSEMIDE [Concomitant]
  27. COUMADIN [Concomitant]
  28. TYLENOL (CAPLET) [Concomitant]

REACTIONS (7)
  - CHRONIC OBSTRUCTIVE PULMONARY DISEASE [None]
  - ECONOMIC PROBLEM [None]
  - INJURY [None]
  - LIVER FUNCTION TEST ABNORMAL [None]
  - SURGERY [None]
  - UNEVALUABLE EVENT [None]
  - UPPER RESPIRATORY TRACT INFECTION [None]
